FAERS Safety Report 9051321 (Version 4)
Quarter: 2013Q3

REPORT INFORMATION
  Report Type: Spontaneous
  Country: US (occurrence: US)
  Receive Date: 20130206
  Receipt Date: 20130805
  Transmission Date: 20140515
  Serious: No
  Sender: FDA-Public Use
  Company Number: US-009507513-1301USA011048

PATIENT
  Age: 21 Year
  Sex: Female
  Weight: 121 kg

DRUGS (1)
  1. IMPLANON [Suspect]
     Dosage: UNK
     Dates: start: 20121011, end: 20130122

REACTIONS (2)
  - Metrorrhagia [Unknown]
  - Device breakage [Recovered/Resolved]
